FAERS Safety Report 10811985 (Version 1)
Quarter: 2015Q1

REPORT INFORMATION
  Report Type: Spontaneous
  Country: US (occurrence: None)
  Receive Date: 20150213
  Receipt Date: 20150213
  Transmission Date: 20150721
  Serious: Yes (Other)
  Sender: FDA-Public Use
  Company Number: None

PATIENT
  Age: 29 Year
  Sex: Female
  Weight: 56.7 kg

DRUGS (1)
  1. SEPTRA [Suspect]
     Active Substance: SULFAMETHOXAZOLE\TRIMETHOPRIM
     Indication: INFECTION
     Dosage: 20 TWICE DAILY TAKEN BY MOUTH
     Route: 048
     Dates: start: 20150211, end: 20150211

REACTIONS (7)
  - Insomnia [None]
  - Pallor [None]
  - Headache [None]
  - Hyperpyrexia [None]
  - Piloerection [None]
  - Flatulence [None]
  - Seizure [None]

NARRATIVE: CASE EVENT DATE: 20150211
